FAERS Safety Report 24857750 (Version 2)
Quarter: 2025Q1

REPORT INFORMATION
  Report Type: Spontaneous
  Country: US (occurrence: US)
  Receive Date: 20250117
  Receipt Date: 20250131
  Transmission Date: 20250408
  Serious: Yes (Other)
  Sender: ABBVIE
  Company Number: US-ABBVIE-6089663

PATIENT
  Age: 53 Year
  Sex: Male
  Weight: 106.59 kg

DRUGS (16)
  1. HUMIRA [Suspect]
     Active Substance: ADALIMUMAB
     Indication: Rheumatoid arthritis
     Dosage: FORM STRENGTH: 40 MILLIGRAM
     Route: 058
     Dates: start: 202206, end: 202304
  2. HUMIRA [Suspect]
     Active Substance: ADALIMUMAB
     Indication: Ankylosing spondylitis
  3. ASPIRIN [Concomitant]
     Active Substance: ASPIRIN
     Indication: Cardiac disorder
  4. METHOTREXATE [Concomitant]
     Active Substance: METHOTREXATE
     Indication: Rheumatoid arthritis
     Dates: end: 202304
  5. METHOTREXATE [Concomitant]
     Active Substance: METHOTREXATE
     Indication: Rheumatoid arthritis
     Route: 048
  6. HUMALOG [Concomitant]
     Active Substance: INSULIN LISPRO
     Indication: Diabetes mellitus
  7. METFORMIN [Concomitant]
     Active Substance: METFORMIN HYDROCHLORIDE
     Indication: Diabetes mellitus
  8. VITAMIN D3 [Concomitant]
     Active Substance: CHOLECALCIFEROL
     Indication: Vitamin supplementation
  9. TOUJEO [Concomitant]
     Active Substance: INSULIN GLARGINE
     Indication: Diabetes mellitus
  10. LOSARTAN [Concomitant]
     Active Substance: LOSARTAN
     Indication: Hypertension
  11. FOLIC ACID [Concomitant]
     Active Substance: FOLIC ACID
     Indication: Vitamin supplementation
     Dates: end: 202304
  12. ATORVASTATIN [Concomitant]
     Active Substance: ATORVASTATIN
     Indication: Blood cholesterol increased
  13. SULFASALAZINE [Concomitant]
     Active Substance: SULFASALAZINE
     Indication: Ankylosing spondylitis
     Dates: end: 202304
  14. Metoprolol Besylate [Concomitant]
     Indication: Hypertension
  15. PERCOCET [Concomitant]
     Active Substance: ACETAMINOPHEN\OXYCODONE HYDROCHLORIDE
     Indication: Pain
  16. FARXIGA [Concomitant]
     Active Substance: DAPAGLIFLOZIN PROPANEDIOL
     Indication: Diabetes mellitus

REACTIONS (12)
  - Tooth fracture [Recovered/Resolved]
  - Tooth loss [Not Recovered/Not Resolved]
  - Dry mouth [Not Recovered/Not Resolved]
  - Tooth loss [Not Recovered/Not Resolved]
  - Tooth fracture [Not Recovered/Not Resolved]
  - Dental caries [Not Recovered/Not Resolved]
  - Tooth fracture [Not Recovered/Not Resolved]
  - Tooth fracture [Not Recovered/Not Resolved]
  - Toothache [Recovered/Resolved]
  - Tooth loss [Not Recovered/Not Resolved]
  - Therapeutic product effect incomplete [Not Recovered/Not Resolved]
  - Arthralgia [Unknown]

NARRATIVE: CASE EVENT DATE: 20220801
